FAERS Safety Report 8278436-0 (Version None)
Quarter: 2012Q2

REPORT INFORMATION
  Report Type: 
  Country: None (occurrence: None)
  Receive Date: 20120412
  Receipt Date: 20120214
  Transmission Date: 20120825
  Serious: No
  Sender: FDA-Public Use
  Company Number: US-ASTRAZENECA-2012SE02174

PATIENT
  Age: 55 Year
  Sex: Female

DRUGS (4)
  1. PREVACID [Concomitant]
  2. NEXIUM [Suspect]
     Route: 048
  3. ZANTAC [Concomitant]
  4. NEXIUM IV [Suspect]
     Route: 042

REACTIONS (9)
  - GASTROOESOPHAGEAL REFLUX DISEASE [None]
  - PAIN [None]
  - ADVERSE EVENT [None]
  - CHEST DISCOMFORT [None]
  - ABDOMINAL PAIN UPPER [None]
  - DRUG DOSE OMISSION [None]
  - INFLAMMATION [None]
  - CONDITION AGGRAVATED [None]
  - NAUSEA [None]
